FAERS Safety Report 8680771 (Version 2)
Quarter: 2012Q4

REPORT INFORMATION
  Report Type: 
  Country: JP (occurrence: JP)
  Receive Date: 20120724
  Receipt Date: 20120829
  Transmission Date: 20130627
  Serious: Yes (Hospitalization)
  Sender: FDA-Public Use
  Company Number: JP-GLAXOSMITHKLINE-B0816228A

PATIENT
  Age: 0 Year
  Sex: Female
  Weight: 2.56 kg

DRUGS (4)
  1. PAXIL [Suspect]
     Indication: DEPRESSION
     Dosage: 20MG Per day
     Route: 064
     Dates: start: 20120525, end: 20120717
  2. SOLANAX [Suspect]
     Indication: DEPRESSION
     Dosage: 3.2MG Per day
     Route: 064
     Dates: end: 20120717
  3. RITODRINE [Concomitant]
     Route: 064
     Dates: start: 20120714
  4. LOCAL ANESTHETIC [Concomitant]
     Indication: ANAESTHESIA PROCEDURE
     Route: 064
     Dates: start: 20120717, end: 20120717

REACTIONS (17)
  - Ventricular septal defect [Unknown]
  - Patent ductus arteriosus [Unknown]
  - Tricuspid valve incompetence [Unknown]
  - Infantile apnoeic attack [Recovered/Resolved]
  - Use of accessory respiratory muscles [Unknown]
  - Drug withdrawal syndrome neonatal [Recovered/Resolved]
  - Neonatal asphyxia [Unknown]
  - Dyskinesia neonatal [Unknown]
  - Neonatal respiratory depression [Unknown]
  - Pallor [Unknown]
  - Resting tremor [Unknown]
  - Tachypnoea [Unknown]
  - Irritability [Unknown]
  - Feeding disorder neonatal [Unknown]
  - Poor weight gain neonatal [Unknown]
  - Foetal exposure during pregnancy [Unknown]
  - Caesarean section [Unknown]
